FAERS Safety Report 17657085 (Version 4)
Quarter: 2020Q2

REPORT INFORMATION
  Report Type: Report from Study
  Country: US (occurrence: US)
  Receive Date: 20200410
  Receipt Date: 20200623
  Transmission Date: 20200713
  Serious: Yes (Other)
  Sender: FDA-Public Use
  Company Number: US-PFIZER INC-2020007432

PATIENT
  Age: 82 Year
  Sex: Female

DRUGS (3)
  1. IBRANCE [Suspect]
     Active Substance: PALBOCICLIB
     Indication: BREAST CANCER FEMALE
     Dosage: 125 MG, CYCLIC (ONCE DAILY, 21 DAYS ON, 7 DAYS OFF)
     Route: 048
     Dates: start: 20200102
  2. FASLODEX [Concomitant]
     Active Substance: FULVESTRANT
     Dosage: UNK
     Route: 030
  3. IBRANCE [Suspect]
     Active Substance: PALBOCICLIB
     Dosage: 100 MG, CYCLIC (ONCE DAILY, 21 DAYS ON, 7 DAYS OFF)
     Route: 048
     Dates: start: 202004

REACTIONS (27)
  - White blood cell count decreased [Recovering/Resolving]
  - Heart rate increased [Recovering/Resolving]
  - Blood count abnormal [Unknown]
  - Product dose omission [Unknown]
  - Basal cell carcinoma [Unknown]
  - Fatigue [Unknown]
  - Increased tendency to bruise [Unknown]
  - Blood calcium decreased [Unknown]
  - Pain in extremity [Unknown]
  - Taste disorder [Unknown]
  - Feeling abnormal [Unknown]
  - Alopecia [Unknown]
  - Hypertension [Recovering/Resolving]
  - Limb discomfort [Not Recovered/Not Resolved]
  - Anorectal discomfort [Recovering/Resolving]
  - Renal impairment [Unknown]
  - Second primary malignancy [Unknown]
  - Hypoaesthesia [Not Recovered/Not Resolved]
  - Pruritus [Recovered/Resolved]
  - Nasal discomfort [Unknown]
  - Hyperhidrosis [Recovering/Resolving]
  - Haemorrhagic diathesis [Recovering/Resolving]
  - Contusion [Unknown]
  - Night sweats [Recovering/Resolving]
  - Nausea [Unknown]
  - Epistaxis [Recovered/Resolved]
  - Hypotension [Unknown]

NARRATIVE: CASE EVENT DATE: 2020
